FAERS Safety Report 14868913 (Version 1)
Quarter: 2018Q2

REPORT INFORMATION
  Report Type: Spontaneous
  Country: FR (occurrence: FR)
  Receive Date: 20180509
  Receipt Date: 20180509
  Transmission Date: 20180711
  Serious: Yes (Other)
  Sender: FDA-Public Use
  Company Number: FR-MERCK KGAA-2047470

PATIENT
  Age: 72 Year
  Sex: Female
  Weight: 65 kg

DRUGS (5)
  1. INEGY [Suspect]
     Active Substance: EZETIMIBE\SIMVASTATIN
     Route: 048
  2. NOVOTHYROX [Suspect]
     Active Substance: LEVOTHYROXINE SODIUM
     Indication: HYPERTHYROIDISM
     Route: 048
  3. KARDEGIC [Suspect]
     Active Substance: ASPIRIN DL-LYSINE
     Route: 048
  4. HYPERIUM [Suspect]
     Active Substance: RILMENIDINE PHOSPHATE
     Route: 048
  5. INFLUVAC [Suspect]
     Active Substance: INFLUENZA VIRUS VACCINE TRIVALENT TYPE A+B
     Route: 030

REACTIONS (2)
  - Injection site pruritus [Recovering/Resolving]
  - Injection site rash [Recovered/Resolved]

NARRATIVE: CASE EVENT DATE: 20171111
